FAERS Safety Report 5512906-0 (Version None)
Quarter: 2007Q4

REPORT INFORMATION
  Report Type: 
  Country: None (occurrence: None)
  Receive Date: 20071112
  Receipt Date: 20071107
  Transmission Date: 20080405
  Serious: No
  Sender: FDA-Public Use
  Company Number: B0492446A

PATIENT
  Age: 72 Year
  Sex: Female
  Weight: 51 kg

DRUGS (4)
  1. SERETIDE [Suspect]
     Indication: ASTHMA
     Dosage: 250MCG TWICE PER DAY
     Route: 055
     Dates: start: 20071018, end: 20071019
  2. UNKNOWN DRUG [Concomitant]
     Indication: ASTHMA
     Dosage: 200MG PER DAY
     Route: 048
     Dates: start: 19991012, end: 20071017
  3. SPIROPENT [Concomitant]
     Indication: ASTHMA
     Route: 048
     Dates: start: 20011026, end: 20071017
  4. BLOPRESS [Concomitant]
     Indication: HYPERTENSION
     Dosage: 8MG PER DAY
     Route: 048
     Dates: start: 19990925, end: 20070701

REACTIONS (4)
  - BLISTER [None]
  - DERMATITIS [None]
  - PRURITUS [None]
  - ULCER [None]
